FAERS Safety Report 17599793 (Version 3)
Quarter: 2020Q2

REPORT INFORMATION
  Report Type: Spontaneous
  Country: SE (occurrence: SE)
  Receive Date: 20200330
  Receipt Date: 20200501
  Transmission Date: 20200713
  Serious: Yes (Other)
  Sender: FDA-Public Use
  Company Number: SE-MYLANLABS-2020M1032442

PATIENT
  Age: 60 Year
  Sex: Female

DRUGS (1)
  1. OXALIPLATIN. [Suspect]
     Active Substance: OXALIPLATIN
     Indication: COLON CANCER
     Dosage: UNK
     Route: 065

REACTIONS (16)
  - Suicide attempt [Unknown]
  - Myocardial infarction [Unknown]
  - Muscle spasms [Unknown]
  - Anxiety [Not Recovered/Not Resolved]
  - Pain in extremity [Unknown]
  - Fatigue [Unknown]
  - Peripheral coldness [Unknown]
  - Depression [Not Recovered/Not Resolved]
  - Oedema peripheral [Unknown]
  - Abdominal pain upper [Unknown]
  - Gait disturbance [Unknown]
  - Post procedural infection [Unknown]
  - Hypoaesthesia [Not Recovered/Not Resolved]
  - Abdominal infection [Unknown]
  - Nerve injury [Not Recovered/Not Resolved]
  - Infection [Unknown]

NARRATIVE: CASE EVENT DATE: 2010
